FAERS Safety Report 23869704 (Version 1)
Quarter: 2024Q2

REPORT INFORMATION
  Report Type: Spontaneous
  Country: HU (occurrence: HU)
  Receive Date: 20240517
  Receipt Date: 20240517
  Transmission Date: 20240716
  Serious: Yes (Death, Hospitalization, Other)
  Sender: FDA-Public Use
  Company Number: HU-JNJFOC-20240533149

PATIENT
  Age: 57 Year
  Sex: Female

DRUGS (2)
  1. IMBRUVICA [Suspect]
     Active Substance: IBRUTINIB
     Indication: Chronic lymphocytic leukaemia
     Route: 048
     Dates: start: 201806
  2. VENETOCLAX [Suspect]
     Active Substance: VENETOCLAX
     Indication: Chronic lymphocytic leukaemia
     Route: 048
     Dates: start: 202301

REACTIONS (11)
  - Sepsis [Fatal]
  - Chronic lymphocytic leukaemia [Fatal]
  - Splenomegaly [Unknown]
  - Richter^s syndrome [Fatal]
  - COVID-19 [Fatal]
  - Vitamin B12 deficiency [Unknown]
  - Hypercalcaemia [Fatal]
  - Anaemia [Unknown]
  - Lymphadenopathy [Unknown]
  - Neutropenia [Fatal]
  - Colitis [Fatal]

NARRATIVE: CASE EVENT DATE: 20230101
